FAERS Safety Report 18397606 (Version 1)
Quarter: 2020Q4

REPORT INFORMATION
  Report Type: Report from Study
  Country: FR (occurrence: FR)
  Receive Date: 20201019
  Receipt Date: 20201019
  Transmission Date: 20210114
  Serious: Yes (Life-Threatening)
  Sender: FDA-Public Use
  Company Number: FR-ELI_LILLY_AND_COMPANY-FR202010006402

PATIENT

DRUGS (2)
  1. BEVACIZUMAB. [Concomitant]
     Active Substance: BEVACIZUMAB
     Indication: RENAL CANCER METASTATIC
     Dosage: 15 MG/KG, CYCLICAL, VERY 3 WEEKS UP TO 6 CYCLES (D1)
     Route: 065
  2. GEMCITABINE HYDROCHLORIDE. [Suspect]
     Active Substance: GEMCITABINE HYDROCHLORIDE
     Indication: RENAL CANCER METASTATIC
     Dosage: 1250 MG/M2, CYCLICAL - EVERY 3 WEEKS UP TO 6 CYCLES (D1, D8)
     Route: 065

REACTIONS (1)
  - Encephalopathy [Unknown]
